FAERS Safety Report 25268887 (Version 6)
Quarter: 2025Q4

REPORT INFORMATION
  Report Type: Spontaneous
  Country: US (occurrence: US)
  Receive Date: 20250505
  Receipt Date: 20251209
  Transmission Date: 20260119
  Serious: Yes (Hospitalization)
  Sender: PFIZER
  Company Number: US-PFIZER INC-202400302254

PATIENT
  Age: 63 Year
  Sex: Female
  Weight: 85.73 kg

DRUGS (5)
  1. PREMARIN [Suspect]
     Active Substance: ESTROGENS, CONJUGATED
     Indication: Hysterectomy
     Dosage: UNK
     Route: 048
     Dates: end: 2006
  2. PREMARIN [Suspect]
     Active Substance: ESTROGENS, CONJUGATED
     Indication: Menopause
     Dosage: UNK
     Route: 048
     Dates: start: 2007, end: 2011
  3. PREMARIN [Suspect]
     Active Substance: ESTROGENS, CONJUGATED
     Dosage: 0.625MG TABLET ONCE A DAY BY MOUTH
     Route: 048
  4. LEVOTHYROXINE [Concomitant]
     Active Substance: LEVOTHYROXINE
     Indication: Thyroid disorder
     Dosage: 100 UG
  5. LEVOTHYROXINE [Concomitant]
     Active Substance: LEVOTHYROXINE
     Dosage: 112 UG TABLET ONCE A DAY BY MOUTH
     Route: 048
     Dates: start: 2012

REACTIONS (6)
  - Insulin resistant diabetes [Not Recovered/Not Resolved]
  - Food poisoning [Unknown]
  - Product dispensing error [Unknown]
  - Sinusitis [Unknown]
  - Alopecia [Recovered/Resolved]
  - Weight decreased [Unknown]

NARRATIVE: CASE EVENT DATE: 20180101
